FAERS Safety Report 4979424-X (Version None)
Quarter: 2006Q2

REPORT INFORMATION
  Report Type: 
  Country: None (occurrence: None)
  Receive Date: 20060421
  Receipt Date: 20051205
  Transmission Date: 20061013
  Serious: Yes (Hospitalization, Disabling)
  Sender: FDA-Public Use
  Company Number: US-MERCK-0512USA00811

PATIENT
  Age: 50 Year
  Sex: Male
  Weight: 76 kg

DRUGS (5)
  1. VIOXX [Suspect]
     Indication: ARTHRITIS
     Route: 048
     Dates: start: 20010328, end: 20040823
  2. HYDROXYCHLOROQUINE SULFATE [Concomitant]
     Route: 065
  3. PREVACID [Concomitant]
     Route: 065
  4. ADVIL [Concomitant]
     Route: 065
     Dates: start: 20010101
  5. MEDROL [Concomitant]
     Route: 065
     Dates: start: 20010301

REACTIONS (14)
  - ACUTE MYOCARDIAL INFARCTION [None]
  - ATRIAL FIBRILLATION [None]
  - BLOOD CHOLESTEROL INCREASED [None]
  - BRADYCARDIA [None]
  - CHEST PAIN [None]
  - CORONARY ARTERY DISEASE [None]
  - CORONARY ARTERY OCCLUSION [None]
  - EMOTIONAL DISTRESS [None]
  - GALLBLADDER DISORDER [None]
  - HYPERCHOLESTEROLAEMIA [None]
  - HYPOTENSION [None]
  - MENTAL DISORDER [None]
  - PALPITATIONS [None]
  - VENTRICULAR TACHYCARDIA [None]
